FAERS Safety Report 12676047 (Version 7)
Quarter: 2020Q2

REPORT INFORMATION
  Report Type: Spontaneous
  Country: DE (occurrence: DE)
  Receive Date: 20160823
  Receipt Date: 20200413
  Transmission Date: 20200713
  Serious: Yes (Hospitalization, Other)
  Sender: FDA-Public Use
  Company Number: DE-AUROBINDO-AUR-APL-2016-10408

PATIENT
  Age: 2 Week
  Sex: Female
  Weight: 4.2 kg

DRUGS (9)
  1. LEVETIRACETAM. [Suspect]
     Active Substance: LEVETIRACETAM
     Dosage: 4000 MILLIGRAM, ONCE A DAY
     Route: 063
     Dates: start: 20150826, end: 20160517
  2. LEVETIRACETAM. [Suspect]
     Active Substance: LEVETIRACETAM
     Dosage: 4500 MILLIGRAM, ONCE A DAY (DOSAGE INCREASED FROM 2X2000MG/D TO 2X2250MG/D)
     Route: 063
  3. LEVETIRACETAM. [Suspect]
     Active Substance: LEVETIRACETAM
     Dosage: 4500 MILLIGRAM
     Route: 063
  4. LAMICTAL [Suspect]
     Active Substance: LAMOTRIGINE
     Dosage: 50 MILLIGRAM, TWO TIMES A DAY (100 MG, ONCE A DAY)
     Route: 063
     Dates: start: 2016
  5. LEVETIRACETAM. [Suspect]
     Active Substance: LEVETIRACETAM
     Dosage: 2 DOSAGE FORM, ONCE A DAY(2X2000 MD/DAY),(2X2250MG /DAY)
     Route: 063
     Dates: start: 2016, end: 2016
  6. LEVETIRACETAM. [Suspect]
     Active Substance: LEVETIRACETAM
     Indication: PRODUCT USED FOR UNKNOWN INDICATION
     Dosage: UNK
     Route: 064
     Dates: start: 20150826, end: 20160517
  7. LEVETIRACETAM. [Suspect]
     Active Substance: LEVETIRACETAM
     Dosage: 2000 MILLIGRAM, TWO TIMES A DAY (2 DF, ONCE A DAY).
     Route: 063
     Dates: start: 2016, end: 2016
  8. LEVETIRACETAM. [Suspect]
     Active Substance: LEVETIRACETAM
     Dosage: 2250 MILLIGRAM, TWO TIMES A DAY (2DF, ONCE A DAY).
     Route: 063
     Dates: start: 2016
  9. LAMICTAL [Suspect]
     Active Substance: LAMOTRIGINE
     Indication: PRODUCT USED FOR UNKNOWN INDICATION
     Dosage: 50 MILLIGRAM, TWO TIMES A DAY (100 MG, ONCE A DAY)
     Route: 063
     Dates: start: 20150826, end: 20160517

REACTIONS (7)
  - Urinary tract infection [Unknown]
  - Foetal exposure during pregnancy [Unknown]
  - Dehydration [Recovered/Resolved]
  - Selective eating disorder [Not Recovered/Not Resolved]
  - Gastrooesophageal reflux disease [Not Recovered/Not Resolved]
  - Weight gain poor [Not Recovered/Not Resolved]
  - Exposure via breast milk [Unknown]

NARRATIVE: CASE EVENT DATE: 20150826
